FAERS Safety Report 13883471 (Version 2)
Quarter: 2017Q3

REPORT INFORMATION
  Report Type: Report from Study
  Country: CA (occurrence: CA)
  Receive Date: 20170818
  Receipt Date: 20170926
  Transmission Date: 20171127
  Serious: Yes (Hospitalization, Other)
  Sender: FDA-Public Use
  Company Number: CA-BRISTOL-MYERS SQUIBB COMPANY-BMS-2017-058564

PATIENT
  Age: 58 Year
  Sex: Male

DRUGS (2)
  1. NIVOLUMAB [Suspect]
     Active Substance: NIVOLUMAB
     Indication: METASTATIC MALIGNANT MELANOMA
     Dosage: 82 MG, Q2WK
     Route: 042
     Dates: start: 20170607
  2. YERVOY [Suspect]
     Active Substance: IPILIMUMAB
     Indication: METASTATIC MALIGNANT MELANOMA
     Dosage: 246 MG, Q2WK
     Route: 042
     Dates: start: 20170607

REACTIONS (12)
  - Hepatic function abnormal [Not Recovered/Not Resolved]
  - Back pain [Unknown]
  - Rash [Recovering/Resolving]
  - Pruritus [Recovering/Resolving]
  - Blood creatinine increased [Not Recovered/Not Resolved]
  - Insomnia [Unknown]
  - Renal impairment [Not Recovered/Not Resolved]
  - Pulmonary function test decreased [Not Recovered/Not Resolved]
  - Blood urine present [Unknown]
  - Splenomegaly [Unknown]
  - Oedema peripheral [Not Recovered/Not Resolved]
  - Atelectasis [Unknown]

NARRATIVE: CASE EVENT DATE: 20170608
